FAERS Safety Report 24220626 (Version 3)
Quarter: 2025Q1

REPORT INFORMATION
  Report Type: Spontaneous
  Country: US (occurrence: US)
  Receive Date: 20240818
  Receipt Date: 20250201
  Transmission Date: 20250408
  Serious: Yes (Other)
  Sender: JOHNSON AND JOHNSON
  Company Number: US-JNJFOC-20240833016

PATIENT
  Age: 57 Year
  Sex: Female
  Weight: 78 kg

DRUGS (2)
  1. SPORANOX [Suspect]
     Active Substance: ITRACONAZOLE
     Indication: Amyotrophic lateral sclerosis
     Route: 065
     Dates: start: 20241002
  2. SPORANOX [Suspect]
     Active Substance: ITRACONAZOLE
     Route: 048
     Dates: start: 20240513, end: 20241015

REACTIONS (4)
  - Off label use [Unknown]
  - Hypokinesia [Not Recovered/Not Resolved]
  - Off label use [Unknown]
  - Inappropriate schedule of product administration [Unknown]

NARRATIVE: CASE EVENT DATE: 20240925
